FAERS Safety Report 8433172-2 (Version None)
Quarter: 2012Q2

REPORT INFORMATION
  Report Type: 
  Country: None (occurrence: None)
  Receive Date: 20120613
  Receipt Date: 20120604
  Transmission Date: 20120825
  Serious: Yes (Other)
  Sender: FDA-Public Use
  Company Number: CL-GLAXOSMITHKLINE-A0980508A

PATIENT
  Age: 40 Year
  Sex: Female

DRUGS (1)
  1. ONDANSETRON [Suspect]
     Indication: PROCEDURAL NAUSEA
     Dosage: 4MG UNKNOWN
     Dates: start: 20120101, end: 20120101

REACTIONS (4)
  - DYSPHAGIA [None]
  - ORAL ALLERGY SYNDROME [None]
  - TONGUE OEDEMA [None]
  - OEDEMA MOUTH [None]
